FAERS Safety Report 7261981-4 (Version None)
Quarter: 2011Q1

REPORT INFORMATION
  Report Type: 
  Country: None (occurrence: None)
  Receive Date: 20110130
  Receipt Date: 20101210
  Transmission Date: 20110831
  Serious: No
  Sender: FDA-Public Use
  Company Number: US-ABBOTT-10P-163-0691362-00

PATIENT
  Sex: Male
  Weight: 118.04 kg

DRUGS (2)
  1. HUMIRA [Suspect]
     Indication: PSORIASIS
     Dates: start: 20040101
  2. HUMIRA [Suspect]
     Indication: ARTHRITIS

REACTIONS (6)
  - CHILLS [None]
  - PULMONARY CONGESTION [None]
  - INFLUENZA LIKE ILLNESS [None]
  - PYREXIA [None]
  - HAEMOPTYSIS [None]
  - PRODUCTIVE COUGH [None]
